FAERS Safety Report 4866359-6 (Version None)
Quarter: 2005Q4

REPORT INFORMATION
  Report Type: 
  Country: None (occurrence: None)
  Receive Date: 20051221
  Receipt Date: 20051209
  Transmission Date: 20060501
  Serious: Yes (Death, Hospitalization)
  Sender: FDA-Public Use
  Company Number: MK200512-0170-1

PATIENT
  Age: 71 Year
  Sex: Male

DRUGS (1)
  1. NEUTROSPEC [Suspect]
     Indication: PYREXIA
     Dosage: 20.8 MCI, ONE TIME, IV
     Route: 042
     Dates: start: 20051202, end: 20051202

REACTIONS (8)
  - COLITIS ISCHAEMIC [None]
  - CONFUSIONAL STATE [None]
  - HEPATIC ENZYME INCREASED [None]
  - HYPOGLYCAEMIA [None]
  - LIVER ABSCESS [None]
  - METABOLIC ACIDOSIS [None]
  - RENAL FAILURE [None]
  - STUPOR [None]
